FAERS Safety Report 8422286-9 (Version None)
Quarter: 2012Q2

REPORT INFORMATION
  Report Type: 
  Country: None (occurrence: None)
  Receive Date: 20120608
  Receipt Date: 20120529
  Transmission Date: 20120825
  Serious: Yes (Death, Other)
  Sender: FDA-Public Use
  Company Number: PT-ROCHE-1070166

PATIENT

DRUGS (4)
  1. AVASTIN [Suspect]
     Indication: NON-SMALL CELL LUNG CANCER
  2. GEMCITABINE HYDROCHLORIDE [Suspect]
     Indication: NON-SMALL CELL LUNG CANCER
  3. PEMETREXED DISODIUM [Suspect]
     Indication: NON-SMALL CELL LUNG CANCER
  4. PACLITAXEL [Suspect]
     Indication: NON-SMALL CELL LUNG CANCER

REACTIONS (9)
  - NEUTROPENIA [None]
  - THROMBOCYTOSIS [None]
  - HYPERTENSION [None]
  - ANAEMIA [None]
  - EMBOLISM [None]
  - THROMBOCYTOPENIA [None]
  - RENAL FAILURE [None]
  - HAEMOPTYSIS [None]
  - INFECTION [None]
